FAERS Safety Report 23138386 (Version 2)
Quarter: 2023Q4

REPORT INFORMATION
  Report Type: Spontaneous
  Country: US (occurrence: US)
  Receive Date: 20231102
  Receipt Date: 20231120
  Transmission Date: 20240110
  Serious: Yes (Other)
  Sender: FDA-Public Use
  Company Number: US-GILEAD-2023-0649329

PATIENT
  Age: 39 Year
  Sex: Male

DRUGS (10)
  1. BIKTARVY [Suspect]
     Active Substance: BICTEGRAVIR SODIUM\EMTRICITABINE\TENOFOVIR ALAFENAMIDE FUMARATE
     Indication: HIV infection
     Dosage: 50-200-25
     Route: 048
     Dates: start: 2020, end: 20221013
  2. FISH OIL [Concomitant]
     Active Substance: FISH OIL
  3. METOPROLOL [Concomitant]
     Active Substance: METOPROLOL
  4. POTASSIUM [Concomitant]
     Active Substance: POTASSIUM
  5. SPIRONOLACTONE [Concomitant]
     Active Substance: SPIRONOLACTONE
  6. FUROSEMIDE [Concomitant]
     Active Substance: FUROSEMIDE
  7. DOXAZOSIN MESYLATE [Concomitant]
     Active Substance: DOXAZOSIN MESYLATE
  8. LISINOPRIL [Concomitant]
     Active Substance: LISINOPRIL
  9. AMLODIPINE [Concomitant]
     Active Substance: AMLODIPINE BESYLATE
  10. ATOMOXETINE [Concomitant]
     Active Substance: ATOMOXETINE

REACTIONS (1)
  - Weight increased [Unknown]

NARRATIVE: CASE EVENT DATE: 20221013
